FAERS Safety Report 6326591-1 (Version None)
Quarter: 2009Q3

REPORT INFORMATION
  Report Type: 
  Country: None (occurrence: None)
  Receive Date: 20090825
  Receipt Date: 20090820
  Transmission Date: 20100115
  Serious: Yes (Other)
  Sender: FDA-Public Use
  Company Number: US-BRISTOL-MYERS SQUIBB COMPANY-14748974

PATIENT
  Age: 61 Year
  Sex: Male

DRUGS (5)
  1. ORENCIA [Suspect]
     Indication: RHEUMATOID ARTHRITIS
     Dosage: NO OF INF-17.
  2. CELEBREX [Concomitant]
  3. NEXIUM [Concomitant]
  4. PREDNISONE [Concomitant]
  5. PROSCAR [Concomitant]

REACTIONS (1)
  - RHABDOMYOLYSIS [None]
